FAERS Safety Report 24679331 (Version 3)
Quarter: 2025Q1

REPORT INFORMATION
  Report Type: Report from Study
  Country: CA (occurrence: CA)
  Receive Date: 20241129
  Receipt Date: 20250319
  Transmission Date: 20250409
  Serious: No
  Sender: BLUEPRINT MEDICINES
  Company Number: CA-Blueprint Medicines Corporation-SO-CA-2024-002467

PATIENT
  Age: 44 Year
  Sex: Female

DRUGS (3)
  1. AVAPRITINIB [Suspect]
     Active Substance: AVAPRITINIB
     Indication: Smouldering systemic mastocytosis
     Route: 048
     Dates: start: 20210301
  2. AVAPRITINIB [Suspect]
     Active Substance: AVAPRITINIB
     Indication: Anaphylactic reaction
  3. AVAPRITINIB [Suspect]
     Active Substance: AVAPRITINIB
     Indication: Systemic mastocytosis

REACTIONS (5)
  - Fatigue [Unknown]
  - Loss of personal independence in daily activities [Not Recovered/Not Resolved]
  - Headache [Not Recovered/Not Resolved]
  - Nausea [Not Recovered/Not Resolved]
  - Off label use [Unknown]

NARRATIVE: CASE EVENT DATE: 20250224
